FAERS Safety Report 6063932-7 (Version None)
Quarter: 2009Q1

REPORT INFORMATION
  Report Type: 
  Country: None (occurrence: None)
  Receive Date: 20090204
  Receipt Date: 20090126
  Transmission Date: 20090719
  Serious: Yes (Other)
  Sender: FDA-Public Use
  Company Number: PHHY2009BR03106

PATIENT
  Sex: Female

DRUGS (5)
  1. FORASEQ [Suspect]
     Indication: ASTHMA
     Dosage: 1 DF, BID
     Dates: start: 20090121
  2. PURAN T4 [Concomitant]
     Indication: THYROID OPERATION
     Dosage: 1 DF, QD
     Route: 048
  3. DIAMICRON MR [Concomitant]
     Indication: DIABETES MELLITUS
     Dosage: 2 TABLETS/DAY (IN THE MORNING)
     Route: 048
  4. ARADOIS [Concomitant]
     Indication: BLOOD PRESSURE
     Dosage: 1 TABLET/DAY
     Route: 048
  5. CLARITHROMYCIN [Concomitant]
     Dosage: 500 MG, BID
     Route: 048
     Dates: start: 20090118, end: 20090122

REACTIONS (5)
  - ASPHYXIA [None]
  - DYSGEUSIA [None]
  - FATIGUE [None]
  - LARYNGOSPASM [None]
  - THIRST [None]
